FAERS Safety Report 17044057 (Version 1)
Quarter: 2019Q4

REPORT INFORMATION
  Report Type: Spontaneous
  Country: US (occurrence: US)
  Receive Date: 20191115
  Receipt Date: 20191115
  Transmission Date: 20200122
  Serious: No
  Sender: FDA-Public Use
  Company Number: None

PATIENT
  Age: 54 Year
  Weight: 49.5 kg

DRUGS (9)
  1. NIACIN EXTENDED-RELEASE TABLETS [Suspect]
     Active Substance: NIACIN
     Indication: HYPERCHOLESTEROLAEMIA
     Dosage: ?          QUANTITY:1 TABLET(S);?
     Route: 048
  2. VIT D [Concomitant]
     Active Substance: VITAMIN D NOS
  3. ROSUVASTATIN. [Concomitant]
     Active Substance: ROSUVASTATIN
  4. TUMERIC [Concomitant]
     Active Substance: HERBALS\TURMERIC
  5. BACLOFEN. [Concomitant]
     Active Substance: BACLOFEN
  6. MVI [Concomitant]
     Active Substance: VITAMINS
  7. FLAXSEED [Concomitant]
     Active Substance: FLAX SEED
  8. CA CITRATE/MGOX/VITD3/B6/MIN (CALCIUM CITRATE +D WITH MAG ORAL) [Concomitant]
     Active Substance: MINERALS\VITAMINS
  9. CANDESARTAN. [Concomitant]
     Active Substance: CANDESARTAN

REACTIONS (3)
  - Pruritus [None]
  - Product solubility abnormal [None]
  - Flushing [None]

NARRATIVE: CASE EVENT DATE: 20191113
